FAERS Safety Report 22003920 (Version 3)
Quarter: 2023Q2

REPORT INFORMATION
  Report Type: Spontaneous
  Country: JP (occurrence: JP)
  Receive Date: 20230217
  Receipt Date: 20230602
  Transmission Date: 20230721
  Serious: Yes (Hospitalization)
  Sender: FDA-Public Use
  Company Number: JP-ABBVIE-4310979

PATIENT
  Age: 50 Year
  Sex: Female
  Weight: 50 kg

DRUGS (8)
  1. RINVOQ [Suspect]
     Active Substance: UPADACITINIB
     Indication: Colitis ulcerative
     Dosage: TIME INTERVAL: 0.33333333 DAYS: 45 MILLIGRAM
     Route: 048
     Dates: start: 20230126, end: 20230216
  2. CELECOXIB [Concomitant]
     Active Substance: CELECOXIB
     Indication: Colitis ulcerative
     Dosage: 400 MILLIGRAM
     Route: 048
     Dates: start: 20230126
  3. ESOMEPRAZOLE MAGNESIUM [Concomitant]
     Active Substance: ESOMEPRAZOLE MAGNESIUM
     Indication: Abdominal discomfort
     Dosage: 20 MILLIGRAM
     Route: 048
     Dates: start: 20230204, end: 20230209
  4. KETOPROFEN [Concomitant]
     Active Substance: KETOPROFEN
     Indication: Arthralgia
     Route: 062
     Dates: start: 2023
  5. CLOSTRIDIUM BUTYRICUM SPORES STRAIN M-55 [Concomitant]
     Active Substance: CLOSTRIDIUM BUTYRICUM SPORES STRAIN M-55
     Indication: Colitis ulcerative
     Dosage: 1 GRAM
     Route: 048
  6. Mesalazine (PENTASA) [Concomitant]
     Indication: Colitis ulcerative
     Dosage: 1 GRAM
     Route: 054
  7. FERROUS FUMARATE [Concomitant]
     Active Substance: FERROUS FUMARATE
     Indication: Anaemia
     Dosage: 100 MILLIGRAM
     Route: 048
     Dates: start: 20230131
  8. Mesalazine (LIALDA) [Concomitant]
     Indication: Colitis ulcerative
     Dosage: 4800 MILLIGRAM
     Route: 048
     Dates: start: 201701

REACTIONS (3)
  - Gastrointestinal haemorrhage [Recovered/Resolved]
  - Gastrointestinal haemorrhage [Recovering/Resolving]
  - Gastrointestinal haemorrhage [Recovering/Resolving]

NARRATIVE: CASE EVENT DATE: 20230201
